FAERS Safety Report 7767730-5 (Version None)
Quarter: 2011Q3

REPORT INFORMATION
  Report Type: 
  Country: None (occurrence: None)
  Receive Date: 20110922
  Receipt Date: 20100915
  Transmission Date: 20111222
  Serious: No
  Sender: FDA-Public Use
  Company Number: US-ASTRAZENECA-2009UW09176

PATIENT
  Age: 15013 Day
  Sex: Male
  Weight: 95.3 kg

DRUGS (17)
  1. SEROQUEL [Suspect]
     Indication: SLEEP DISORDER
     Dosage: 100 MG TO 800 MG
     Route: 048
     Dates: start: 20070308, end: 20070507
  2. SEROQUEL [Suspect]
     Dosage: 50-400 MG
     Route: 048
     Dates: start: 20070323, end: 20081024
  3. SEROQUEL [Suspect]
     Indication: DEPRESSION
     Dosage: 100 MG TO 800 MG
     Route: 048
     Dates: start: 20070308, end: 20070507
  4. SEROQUEL [Suspect]
     Dosage: 50-400 MG
     Route: 048
     Dates: start: 20070323, end: 20081024
  5. ABILIFY [Concomitant]
     Dates: start: 20060609, end: 20071101
  6. ZYPREXA [Concomitant]
     Indication: BIPOLAR DISORDER
     Dates: start: 20041201, end: 20050201
  7. DEPAKOTE [Concomitant]
     Indication: BIPOLAR DISORDER
  8. LEXAPRO [Concomitant]
     Indication: DEPRESSION
     Dates: start: 20041001
  9. SEROQUEL [Suspect]
     Dosage: 50-400 MG
     Route: 048
     Dates: start: 20070323, end: 20081024
  10. ZOLOFT [Concomitant]
     Dates: start: 20051020, end: 20060601
  11. CYMBALTA [Concomitant]
     Dosage: 20-60 MG
     Dates: start: 20051020, end: 20060601
  12. SEROQUEL [Suspect]
     Indication: BIPOLAR DISORDER
     Dosage: 100 MG TO 800 MG
     Route: 048
     Dates: start: 20070308, end: 20070507
  13. SEROQUEL [Suspect]
     Dosage: 50-400 MG
     Route: 048
     Dates: start: 20070323, end: 20081024
  14. PROCHLORPERAZINE [Concomitant]
     Dates: start: 20041001
  15. SEROQUEL [Suspect]
     Indication: INSOMNIA
     Dosage: 100 MG TO 800 MG
     Route: 048
     Dates: start: 20070308, end: 20070507
  16. ABILIFY [Concomitant]
     Dates: start: 20080716, end: 20081001
  17. RISPERDAL [Concomitant]
     Dosage: 0.5 MG
     Dates: start: 20041001, end: 20041201

REACTIONS (4)
  - HEAD INJURY [None]
  - VIRAL DIARRHOEA [None]
  - TYPE 2 DIABETES MELLITUS [None]
  - CHEST PAIN [None]
